FAERS Safety Report 22657483 (Version 1)
Quarter: 2023Q2

REPORT INFORMATION
  Report Type: Spontaneous
  Country: US (occurrence: US)
  Receive Date: 20230630
  Receipt Date: 20230630
  Transmission Date: 20230722
  Serious: No
  Sender: FDA-Public Use
  Company Number: US-drreddys-SPO/USA/23/0164980

PATIENT
  Age: 17 Year
  Sex: Male

DRUGS (2)
  1. ZENATANE [Suspect]
     Active Substance: ISOTRETINOIN
     Indication: Product used for unknown indication
     Dates: start: 20220601
  2. ZENATANE [Suspect]
     Active Substance: ISOTRETINOIN
     Dates: start: 202301, end: 20230201

REACTIONS (4)
  - Acne [Unknown]
  - Papule [Unknown]
  - Acne [Unknown]
  - Product dose omission issue [Unknown]
